FAERS Safety Report 9419631 (Version 1)
Quarter: 2013Q3

REPORT INFORMATION
  Report Type: Spontaneous
  Country: ZA (occurrence: ZA)
  Receive Date: 20130725
  Receipt Date: 20130725
  Transmission Date: 20140515
  Serious: Yes (Other)
  Sender: FDA-Public Use
  Company Number: ZA-BAYER-2013-087810

PATIENT
  Sex: Male

DRUGS (1)
  1. CIPROBAY 500 [Suspect]
     Indication: URINARY TRACT INFECTION
     Dosage: UNK
     Dates: start: 20130716

REACTIONS (2)
  - Haemorrhage urinary tract [None]
  - Blood urine present [Recovered/Resolved]
